FAERS Safety Report 14720885 (Version 1)
Quarter: 2018Q1

REPORT INFORMATION
  Report Type: Spontaneous
  Country: US (occurrence: US)
  Receive Date: 20180330
  Receipt Date: 20180330
  Transmission Date: 20180509
  Serious: Yes (Other)
  Sender: FDA-Public Use
  Company Number: None

PATIENT
  Age: 35 Year
  Sex: Female

DRUGS (1)
  1. LUPRON [Suspect]
     Active Substance: LEUPROLIDE ACETATE
     Indication: PERINEAL PAIN
     Route: 030
     Dates: start: 20180202

REACTIONS (3)
  - Therapy non-responder [None]
  - Migraine [None]
  - Hot flush [None]

NARRATIVE: CASE EVENT DATE: 20180330
